FAERS Safety Report 9238221 (Version 1)
Quarter: 2013Q2

REPORT INFORMATION
  Report Type: Spontaneous
  Country: US (occurrence: None)
  Receive Date: 20130416
  Receipt Date: 20130416
  Transmission Date: 20140414
  Serious: Yes (Death)
  Sender: FDA-Public Use
  Company Number: 201304-US-000637

PATIENT
  Sex: 0

DRUGS (1)
  1. SODIUM PHOSPHATE DIBASIC/SODIUM PHOSPHATE (SODIUM PHOSPHATE DIBASIC, SODIUM PHOSPHATE) (RECTAL SOLUTION) [Suspect]
     Indication: PRODUCT USED FOR UNKNOWN INDICATION
     Dosage: MULTIPLE ENEMAS, RECTAL
     Route: 054

REACTIONS (4)
  - Hypernatraemia [None]
  - Hypocalcaemia [None]
  - Hypovolaemia [None]
  - Renal failure acute [None]
